FAERS Safety Report 15112095 (Version 9)
Quarter: 2020Q2

REPORT INFORMATION
  Report Type: Spontaneous
  Country: IT (occurrence: IT)
  Receive Date: 20180705
  Receipt Date: 20200501
  Transmission Date: 20200713
  Serious: Yes (Life-Threatening, Hospitalization, Other)
  Sender: FDA-Public Use
  Company Number: IT-CELGENEUS-ITA-20180602637

PATIENT
  Age: 76 Year
  Sex: Female
  Weight: 85 kg

DRUGS (51)
  1. NORMAL SALINE [Concomitant]
     Active Substance: SODIUM CHLORIDE
     Route: 041
     Dates: start: 20180520, end: 20180523
  2. CLEXANE [Concomitant]
     Active Substance: ENOXAPARIN SODIUM
     Dosage: 2000 MILLIGRAM
     Route: 058
     Dates: start: 20180513, end: 20180514
  3. PACKED RED BLOOD CELLS [Concomitant]
     Active Substance: HUMAN RED BLOOD CELL
     Route: 065
     Dates: start: 20180516
  4. NORMAL SALINE [Concomitant]
     Active Substance: SODIUM CHLORIDE
     Dosage: 200 MILLILITER
     Route: 041
     Dates: start: 20180512, end: 20180515
  5. CHLORPHENAMINE MALEATE [Concomitant]
     Active Substance: CHLORPHENIRAMINE MALEATE
     Indication: INFECTION
     Dosage: 10 MILLIGRAM
     Route: 048
     Dates: start: 20180517, end: 20180523
  6. POTASSIUM CHLORIDE. [Concomitant]
     Active Substance: POTASSIUM CHLORIDE
     Indication: PROPHYLAXIS
     Dosage: 2 MILLIEQUIVALENTS
     Route: 041
     Dates: start: 20180505, end: 20180524
  7. POTASSIUM CHLORIDE. [Concomitant]
     Active Substance: POTASSIUM CHLORIDE
     Indication: HYPOKALAEMIA
     Dosage: 600 MILLIGRAM
     Route: 048
     Dates: start: 20180517, end: 20180524
  8. LEVOTIROXIN [Concomitant]
     Active Substance: LEVOTHYROXINE SODIUM
     Dosage: 125 MILLIGRAM
     Route: 048
     Dates: start: 20180504, end: 20180711
  9. OLMESARTAN MEDOXOMIL. [Concomitant]
     Active Substance: OLMESARTAN MEDOXOMIL
     Indication: HYPERTENSION
     Dosage: 20 MG + 12.5 MG
     Route: 048
     Dates: start: 20180504, end: 20180711
  10. CLEXANE [Concomitant]
     Active Substance: ENOXAPARIN SODIUM
     Indication: THROMBOSIS PROPHYLAXIS
     Dosage: 4000 MILLIGRAM
     Route: 058
     Dates: start: 20180508, end: 20180510
  11. HYDROXYUREA. [Concomitant]
     Active Substance: HYDROXYUREA
     Dosage: 100 MILLIGRAM
     Route: 048
     Dates: start: 20180515, end: 20180516
  12. VENETOCLAX. [Concomitant]
     Active Substance: VENETOCLAX
     Dosage: 50 MILLIGRAM
     Route: 048
     Dates: start: 20180519, end: 20180623
  13. CHLORPHENAMINE MALEATE [Concomitant]
     Active Substance: CHLORPHENIRAMINE MALEATE
     Dosage: 10 MILLIGRAM
     Route: 058
     Dates: start: 20180619, end: 20180625
  14. LASIX [Concomitant]
     Active Substance: FUROSEMIDE
     Dosage: 25 MILLIGRAM
     Route: 041
     Dates: start: 20180506, end: 20180524
  15. HYDROXYUREA. [Concomitant]
     Active Substance: HYDROXYUREA
     Indication: ANAEMIA
     Dosage: 1000 MILLIGRAM
     Route: 048
     Dates: start: 20180505, end: 20180508
  16. LEVOFLOXACIN. [Concomitant]
     Active Substance: LEVOFLOXACIN
     Indication: ANTIBIOTIC PROPHYLAXIS
  17. LEVOTIROXIN [Concomitant]
     Active Substance: LEVOTHYROXINE SODIUM
     Indication: GOITRE
     Dosage: 100 MILLIGRAM
     Route: 048
     Dates: start: 20180504, end: 20180711
  18. RANITIDINE. [Concomitant]
     Active Substance: RANITIDINE
     Indication: GASTRITIS PROPHYLAXIS
     Dosage: 150 MILLIGRAM
     Route: 048
     Dates: start: 20180514, end: 20180524
  19. BACTRIM [Concomitant]
     Active Substance: SULFAMETHOXAZOLE\TRIMETHOPRIM
     Indication: INFECTION PROPHYLAXIS
     Dosage: 80+400
     Route: 048
     Dates: start: 20180506, end: 20180523
  20. GLUTATHIONE [Concomitant]
     Active Substance: GLUTATHIONE
     Indication: PROPHYLAXIS
     Dosage: 600 MILLIGRAM
     Route: 041
     Dates: start: 20180512, end: 20180516
  21. PACKED RED BLOOD CELLS [Concomitant]
     Active Substance: HUMAN RED BLOOD CELL
     Indication: PRODUCT USED FOR UNKNOWN INDICATION
     Route: 065
     Dates: start: 20180505
  22. AZACITIDINE INJECTABLE [Suspect]
     Active Substance: AZACITIDINE
     Indication: ACUTE MYELOID LEUKAEMIA
     Dosage: 75 MILLIGRAM/SQ. METER
     Route: 058
     Dates: start: 20180517, end: 20180523
  23. VENETOCLAX. [Concomitant]
     Active Substance: VENETOCLAX
     Dosage: 20 MILLIGRAM
     Route: 048
     Dates: start: 20180518, end: 20180518
  24. ALLOPURINOL. [Concomitant]
     Active Substance: ALLOPURINOL
     Indication: PROPHYLAXIS
     Dosage: 300 MILLIGRAM
     Route: 048
     Dates: start: 20180506, end: 20180524
  25. NORMAL SALINE [Concomitant]
     Active Substance: SODIUM CHLORIDE
     Route: 041
     Dates: start: 20180518, end: 20180524
  26. ALBUMIN [Concomitant]
     Active Substance: ALBUMIN HUMAN
     Indication: PROPHYLAXIS
     Dosage: 50 GRAM
     Route: 041
     Dates: start: 20180505, end: 20180507
  27. ALBUMIN [Concomitant]
     Active Substance: ALBUMIN HUMAN
     Dosage: 100 GRAM
     Route: 041
     Dates: start: 20180521, end: 20180524
  28. LASIX [Concomitant]
     Active Substance: FUROSEMIDE
     Indication: HYPERTENSION
     Dosage: 12.5 MILLIGRAM
     Route: 041
     Dates: start: 20180505, end: 20180505
  29. CLEXANE [Concomitant]
     Active Substance: ENOXAPARIN SODIUM
     Dosage: 4000 MILLIGRAM
     Route: 058
     Dates: start: 20180512, end: 20180512
  30. BISOPROLOL [Concomitant]
     Active Substance: BISOPROLOL
     Indication: HYPERTENSION
     Dosage: 2.5 MILLIGRAM
     Route: 048
     Dates: start: 20180513, end: 20180711
  31. TAZOCIN [Concomitant]
     Active Substance: PIPERACILLIN SODIUM\TAZOBACTAM SODIUM
     Indication: INFECTION PROPHYLAXIS
     Dosage: 4 GRAM
     Route: 041
     Dates: start: 20180503, end: 20180503
  32. NORMAL SALINE [Concomitant]
     Active Substance: SODIUM CHLORIDE
     Indication: PROPHYLAXIS
     Route: 041
     Dates: start: 20180506, end: 20180517
  33. ZOFRAN [Concomitant]
     Active Substance: ONDANSETRON HYDROCHLORIDE
     Indication: PROPHYLACTIC CHEMOTHERAPY
     Dosage: 4 MILLIGRAM
     Route: 048
     Dates: start: 20180517, end: 20180523
  34. ZOFRAN [Concomitant]
     Active Substance: ONDANSETRON HYDROCHLORIDE
     Dosage: 4 MILLIGRAM
     Route: 048
     Dates: start: 20180619, end: 20180625
  35. POTASSIUM CHLORIDE. [Concomitant]
     Active Substance: POTASSIUM CHLORIDE
     Indication: HYPOKALAEMIA
  36. ALBUMIN [Concomitant]
     Active Substance: ALBUMIN HUMAN
     Dosage: 50 GRAM
     Route: 041
     Dates: start: 20180518, end: 20180520
  37. ESOMEPRAZOLE. [Concomitant]
     Active Substance: ESOMEPRAZOLE MAGNESIUM
     Indication: HYPOKALAEMIA
     Dosage: 40 MILLIGRAM
     Route: 048
     Dates: start: 20180524, end: 20180711
  38. ISOPTIN [Concomitant]
     Active Substance: VERAPAMIL HYDROCHLORIDE
     Indication: CORONARY ARTERY INSUFFICIENCY
     Dosage: 80 MILLIGRAM
     Route: 048
     Dates: start: 20180504, end: 20180512
  39. PACKED RED BLOOD CELLS [Concomitant]
     Active Substance: HUMAN RED BLOOD CELL
     Route: 065
     Dates: start: 20180513
  40. VENETOCLAX. [Concomitant]
     Active Substance: VENETOCLAX
     Indication: ACUTE MYELOID LEUKAEMIA
     Dosage: 10 MILLIGRAM
     Route: 048
     Dates: start: 20180517, end: 20180517
  41. PARACETAMOL [Concomitant]
     Active Substance: ACETAMINOPHEN
     Indication: PROPHYLACTIC CHEMOTHERAPY
     Dosage: 1000 MICROGRAM
     Route: 048
     Dates: start: 20180517, end: 20180523
  42. ALBUMIN [Concomitant]
     Active Substance: ALBUMIN HUMAN
     Indication: HYPOKALAEMIA
     Dosage: 100 GRAM
     Route: 041
     Dates: start: 20180508, end: 20180517
  43. POSACONAZOLE [Concomitant]
     Active Substance: POSACONAZOLE
     Indication: INFECTION PROPHYLAXIS
     Dosage: 300 MILLIGRAM
     Route: 048
     Dates: start: 20180508, end: 20180711
  44. PACKED RED BLOOD CELLS [Concomitant]
     Active Substance: HUMAN RED BLOOD CELL
     Route: 065
     Dates: start: 20180510
  45. AZACITIDINE INJECTABLE [Suspect]
     Active Substance: AZACITIDINE
     Dosage: 75 MILLIGRAM/SQ. METER
     Route: 058
     Dates: start: 20180619, end: 20180623
  46. ALLOPURINOL. [Concomitant]
     Active Substance: ALLOPURINOL
     Indication: PROPHYLAXIS
     Dosage: 300 MILLIGRAM
     Route: 048
     Dates: start: 20180505, end: 20180524
  47. PARACETAMOL [Concomitant]
     Active Substance: ACETAMINOPHEN
     Dosage: 1 GRAM
     Route: 048
     Dates: start: 20180619, end: 20180625
  48. ROCEFIN [Concomitant]
     Active Substance: CEFTRIAXONE SODIUM
     Indication: INFECTION PROPHYLAXIS
     Dosage: 1 GRAM
     Route: 041
     Dates: start: 20180509, end: 20180524
  49. ESOMEPRAZOLE. [Concomitant]
     Active Substance: ESOMEPRAZOLE MAGNESIUM
     Indication: PROPHYLAXIS
     Dosage: 40 MILLIGRAM
     Route: 048
     Dates: start: 20180504, end: 20180512
  50. HYDROXYUREA. [Concomitant]
     Active Substance: HYDROXYUREA
     Dosage: 2000 MILLIGRAM
     Route: 048
     Dates: start: 20180509, end: 20180514
  51. LEVOFLOXACIN. [Concomitant]
     Active Substance: LEVOFLOXACIN
     Indication: INFECTION PROPHYLAXIS
     Dosage: 500 MILLIGRAM
     Route: 048
     Dates: start: 20180525, end: 20180711

REACTIONS (2)
  - Waterhouse-Friderichsen syndrome [Recovered/Resolved]
  - Pneumonia klebsiella [Recovered/Resolved]

NARRATIVE: CASE EVENT DATE: 20180531
